FAERS Safety Report 6760302-0 (Version None)
Quarter: 2010Q2

REPORT INFORMATION
  Report Type: 
  Country: None (occurrence: None)
  Receive Date: 20100608
  Receipt Date: 20100604
  Transmission Date: 20101027
  Serious: Yes (Death)
  Sender: FDA-Public Use
  Company Number: US-ASTRAZENECA-2010SE25944

PATIENT
  Age: 46 Year
  Sex: Male

DRUGS (6)
  1. SEROQUEL [Suspect]
     Indication: INSOMNIA
     Route: 048
     Dates: start: 20090901
  2. SEROQUEL [Suspect]
     Indication: HALLUCINATION
     Route: 048
     Dates: start: 20090901
  3. SEROQUEL [Suspect]
     Indication: SLEEP APNOEA SYNDROME
     Route: 048
     Dates: start: 20090901
  4. OXYCONTIN [Concomitant]
  5. NEURONTIN [Concomitant]
  6. ABILIFY [Concomitant]
     Dosage: ONLY ONE DOSE

REACTIONS (2)
  - COMPLETED SUICIDE [None]
  - SOMNOLENCE [None]
